FAERS Safety Report 13353676 (Version 1)
Quarter: 2017Q1

REPORT INFORMATION
  Report Type: Spontaneous
  Country: GB (occurrence: GB)
  Receive Date: 20170321
  Receipt Date: 20170321
  Transmission Date: 20170429
  Serious: Yes (Hospitalization, Other)
  Sender: FDA-Public Use
  Company Number: GB-TORRENT-00009002

PATIENT
  Age: 57 Year
  Sex: Female

DRUGS (7)
  1. CLOZARIL [Suspect]
     Active Substance: CLOZAPINE
  2. RISPERIDONE. [Suspect]
     Active Substance: RISPERIDONE
  3. PROCYCLIDINE [Suspect]
     Active Substance: PROCYCLIDINE
  4. RIFABUTIN. [Suspect]
     Active Substance: RIFABUTIN
  5. ISONIAZID. [Suspect]
     Active Substance: ISONIAZID
  6. RIFAMPICIN [Suspect]
     Active Substance: RIFAMPIN
  7. LOFEPRAMINE [Suspect]
     Active Substance: LOFEPRAMINE

REACTIONS (4)
  - Tuberculosis of central nervous system [Unknown]
  - White blood cell count decreased [Recovered/Resolved]
  - Labelled drug-drug interaction medication error [Unknown]
  - Antipsychotic drug level above therapeutic [Unknown]

NARRATIVE: CASE EVENT DATE: 201603
